FAERS Safety Report 7249045-7 (Version None)
Quarter: 2011Q1

REPORT INFORMATION
  Report Type: 
  Country: None (occurrence: None)
  Receive Date: 20110128
  Receipt Date: 20100426
  Transmission Date: 20110831
  Serious: Yes (Life-Threatening, Hospitalization)
  Sender: FDA-Public Use
  Company Number: US-BAYER-201023119NA

PATIENT
  Sex: Female
  Weight: 61.818 kg

DRUGS (11)
  1. OCELLA [Suspect]
     Indication: ORAL CONTRACEPTION
     Route: 048
     Dates: start: 20080717, end: 20090901
  2. LORAZEPAM [Concomitant]
  3. FOLTX [Concomitant]
  4. ASPIRIN [Concomitant]
  5. XANAX [Concomitant]
     Indication: ANXIETY
  6. FLURAZEPAM [Concomitant]
  7. MAXALT [Concomitant]
  8. YAZ [Suspect]
     Indication: PRODUCT USED FOR UNKNOWN INDICATION
  9. YASMIN [Suspect]
     Indication: ORAL CONTRACEPTION
     Route: 048
     Dates: start: 20040830, end: 20080701
  10. INDERAL [Concomitant]
     Indication: ANXIETY
  11. ACCUTANE [Concomitant]

REACTIONS (8)
  - HYPOAESTHESIA FACIAL [None]
  - DYSARTHRIA [None]
  - VIITH NERVE PARALYSIS [None]
  - DEPRESSION [None]
  - HYPOKALAEMIA [None]
  - TRANSIENT ISCHAEMIC ATTACK [None]
  - PARAESTHESIA [None]
  - HEADACHE [None]
